FAERS Safety Report 8025765-1 (Version None)
Quarter: 2012Q1

REPORT INFORMATION
  Report Type: 
  Country: None (occurrence: None)
  Receive Date: 20120105
  Receipt Date: 20110808
  Transmission Date: 20120608
  Serious: No
  Sender: FDA-Public Use
  Company Number: US-ABBOTT-11P-163-0844969-00

PATIENT
  Sex: Female

DRUGS (3)
  1. SYNTHROID [Suspect]
     Dosage: OTHER 6 DAYS OF THE WEEK
     Dates: start: 20110101
  2. SYNTHROID [Suspect]
     Indication: HYPOTHYROIDISM
     Route: 048
     Dates: start: 20060101
  3. SYNTHROID [Suspect]
     Dosage: ONE DAY OF THE WEEK
     Route: 048

REACTIONS (1)
  - COELIAC DISEASE [None]
